FAERS Safety Report 19624775 (Version 1)
Quarter: 2021Q3

REPORT INFORMATION
  Report Type: Spontaneous
  Country: US (occurrence: US)
  Receive Date: 20210729
  Receipt Date: 20210729
  Transmission Date: 20211014
  Serious: No
  Sender: FDA-Public Use
  Company Number: US-ULTRAGENYX PHARMACEUTICAL INC.-US-UGNX-21-00157

PATIENT
  Age: 18 Year
  Sex: Female

DRUGS (3)
  1. DOJOLVI [Suspect]
     Active Substance: TRIHEPTANOIN
     Indication: TRIFUNCTIONAL PROTEIN DEFICIENCY
     Route: 048
     Dates: start: 202105
  2. DOJOLVI [Suspect]
     Active Substance: TRIHEPTANOIN
     Route: 048
     Dates: start: 20210519
  3. DOJOLVI [Suspect]
     Active Substance: TRIHEPTANOIN
     Route: 048

REACTIONS (2)
  - Diarrhoea [Recovered/Resolved]
  - Nausea [Unknown]

NARRATIVE: CASE EVENT DATE: 20210519
